FAERS Safety Report 10229724 (Version 2)
Quarter: 2014Q3

REPORT INFORMATION
  Report Type: Report from Study
  Country: MX (occurrence: MX)
  Receive Date: 20140611
  Receipt Date: 20140812
  Transmission Date: 20150326
  Serious: Yes (Other)
  Sender: FDA-Public Use
  Company Number: PHHY2014MX071290

PATIENT
  Age: 66 Year
  Sex: Male
  Weight: 61 kg

DRUGS (3)
  1. TEGRETOL [Suspect]
     Active Substance: CARBAMAZEPINE
     Indication: PETIT MAL EPILEPSY
     Dosage: TWO TABLETS (200MG) DAILY
     Route: 048
  2. ATEMPERATOR//VALPROATE MAGNESIUM [Concomitant]
     Indication: PETIT MAL EPILEPSY
     Dosage: 2 UKN, DAILY
  3. TEGRETOL [Suspect]
     Active Substance: CARBAMAZEPINE
     Dosage: ONE AND A HALF TABLETS (200MG) DAILY
     Route: 048
     Dates: end: 201401

REACTIONS (3)
  - Hypertension [Unknown]
  - Myocardial infarction [Unknown]
  - Wrong technique in drug usage process [Recovered/Resolved]
